FAERS Safety Report 19405588 (Version 1)
Quarter: 2021Q2

REPORT INFORMATION
  Report Type: Spontaneous
  Country: BR (occurrence: BR)
  Receive Date: 20210611
  Receipt Date: 20210611
  Transmission Date: 20210717
  Serious: Yes (Other)
  Sender: FDA-Public Use
  Company Number: BR-ACCORD-227323

PATIENT
  Age: 23 Year
  Sex: Female

DRUGS (10)
  1. CYCLOPHOSPHAMIDE/CYCLOPHOSPHAMIDE MONOHYDRATE [Suspect]
     Active Substance: CYCLOPHOSPHAMIDE
     Indication: METASTASES TO LUNG
     Dates: start: 20160617
  2. VINCRISTINE [Suspect]
     Active Substance: VINCRISTINE
     Indication: METASTASES TO LUNG
     Dates: start: 20160617
  3. ACTINOMYCIN D [Suspect]
     Active Substance: DACTINOMYCIN
     Indication: GESTATIONAL TROPHOBLASTIC TUMOUR
     Dates: start: 20160610
  4. VINCRISTINE [Suspect]
     Active Substance: VINCRISTINE
     Indication: GESTATIONAL TROPHOBLASTIC TUMOUR
     Dates: start: 20160617
  5. ETOPOSIDE. [Suspect]
     Active Substance: ETOPOSIDE
     Indication: GESTATIONAL TROPHOBLASTIC TUMOUR
     Dates: start: 20160610
  6. DACTINOMYCIN [Suspect]
     Active Substance: DACTINOMYCIN
     Indication: METASTASES TO LUNG
     Dates: start: 20160610
  7. METHOTREXATE. [Suspect]
     Active Substance: METHOTREXATE
     Indication: GESTATIONAL TROPHOBLASTIC TUMOUR
     Dates: start: 20160610
  8. METHOTREXATE. [Suspect]
     Active Substance: METHOTREXATE
     Indication: METASTASES TO LUNG
     Dates: start: 20160610
  9. CYCLOPHOSPHAMIDE. [Suspect]
     Active Substance: CYCLOPHOSPHAMIDE
     Indication: GESTATIONAL TROPHOBLASTIC TUMOUR
     Dates: start: 20160617
  10. ETOPOSIDE. [Suspect]
     Active Substance: ETOPOSIDE
     Indication: GESTATIONAL TROPHOBLASTIC TUMOUR
     Dates: start: 20160610

REACTIONS (2)
  - Gastrointestinal toxicity [Unknown]
  - Drug-induced liver injury [Unknown]

NARRATIVE: CASE EVENT DATE: 2016
